APPROVED DRUG PRODUCT: DEXTROAMPHETAMINE SULFATE
Active Ingredient: DEXTROAMPHETAMINE SULFATE
Strength: 5MG
Dosage Form/Route: TABLET;ORAL
Application: A040299 | Product #001
Applicant: STRIDES PHARMA INTERNATIONAL AG
Approved: May 13, 1999 | RLD: No | RS: No | Type: DISCN